FAERS Safety Report 24554020 (Version 1)
Quarter: 2024Q4

REPORT INFORMATION
  Report Type: Spontaneous
  Country: US (occurrence: US)
  Receive Date: 20241028
  Receipt Date: 20241028
  Transmission Date: 20250114
  Serious: No
  Sender: SERVIER
  Company Number: US-SERVIER-S24012867

PATIENT

DRUGS (1)
  1. VORANIGO [Suspect]
     Active Substance: VORASIDENIB
     Indication: Product used for unknown indication
     Dosage: UNK
     Route: 048
     Dates: start: 202409

REACTIONS (1)
  - Diarrhoea [Unknown]
